FAERS Safety Report 5472482-8 (Version None)
Quarter: 2007Q3

REPORT INFORMATION
  Report Type: 
  Country: None (occurrence: None)
  Receive Date: 20070926
  Receipt Date: 20070914
  Transmission Date: 20080115
  Serious: Yes (Hospitalization)
  Sender: FDA-Public Use
  Company Number: GXKR2007ES07995

PATIENT
  Age: 69 Year
  Sex: Male

DRUGS (2)
  1. AMOXICILLIN [Suspect]
     Indication: URINARY TRACT INFECTION
     Dosage: INTRAVENOUS; 1 G, INTRAVENOUS
     Route: 042
  2. HYDROCORTISONE [Concomitant]

REACTIONS (7)
  - ACUTE CORONARY SYNDROME [None]
  - CONDITION AGGRAVATED [None]
  - DRUG HYPERSENSITIVITY [None]
  - ELECTROCARDIOGRAM ST SEGMENT ELEVATION [None]
  - EPIGASTRIC DISCOMFORT [None]
  - HYPOTENSION [None]
  - METABOLIC ACIDOSIS [None]
